FAERS Safety Report 4724483-2 (Version None)
Quarter: 2005Q3

REPORT INFORMATION
  Report Type: 
  Country: None (occurrence: None)
  Receive Date: 20050722
  Receipt Date: 20050722
  Transmission Date: 20060218
  Serious: Yes (Hospitalization)
  Sender: FDA-Public Use
  Company Number: None

PATIENT
  Sex: Male
  Weight: 95.2554 kg

DRUGS (6)
  1. DEPO-MEDROL [Suspect]
     Indication: INTERVERTEBRAL DISC PROTRUSION
     Dosage: 1 CC
     Dates: start: 20050628
  2. DEPO-MEDROL [Suspect]
     Indication: LUMBAR RADICULOPATHY
     Dosage: 1 CC
     Dates: start: 20050628
  3. DECADRON [Suspect]
     Dosage: 1/2CC
  4. KENALOG [Suspect]
     Dosage: 1CC
  5. BUPIVACAINE HCL AND EPINEPHRINE [Suspect]
  6. ISOVUE 300-M-2CC [Suspect]
     Dosage: 2CC

REACTIONS (2)
  - HEADACHE [None]
  - MENINGITIS STREPTOCOCCAL [None]
